FAERS Safety Report 15149918 (Version 1)
Quarter: 2018Q3

REPORT INFORMATION
  Report Type: Spontaneous
  Country: FR (occurrence: FR)
  Receive Date: 20180716
  Receipt Date: 20180716
  Transmission Date: 20181010
  Serious: Yes (Other)
  Sender: FDA-Public Use
  Company Number: FR-ELI_LILLY_AND_COMPANY-FR201807004221

PATIENT
  Age: 70 Year
  Sex: Male

DRUGS (4)
  1. AERIUS                             /01009701/ [Concomitant]
     Active Substance: EBASTINE
     Indication: RASH
     Dosage: UNK UNK, UNKNOWN
     Route: 048
  2. ALIMTA [Suspect]
     Active Substance: PEMETREXED DISODIUM
     Indication: LUNG ADENOCARCINOMA
     Dosage: UNK UNK, UNKNOWN
     Route: 042
     Dates: start: 20170109
  3. CYANOCOBALAMINE [Concomitant]
     Active Substance: CYANOCOBALAMIN
     Indication: VITAMIN SUPPLEMENTATION
     Dosage: UNK, UNKNOWN
     Route: 048
  4. SPECIAFOLDINE [Concomitant]
     Active Substance: FOLIC ACID
     Indication: VITAMIN SUPPLEMENTATION
     Dosage: UNK UNK, UNKNOWN
     Route: 048

REACTIONS (1)
  - Fasciitis [Not Recovered/Not Resolved]

NARRATIVE: CASE EVENT DATE: 201801
